FAERS Safety Report 5125928-9 (Version None)
Quarter: 2006Q3

REPORT INFORMATION
  Report Type: 
  Country: None (occurrence: None)
  Receive Date: 20060811
  Receipt Date: 20060427
  Transmission Date: 20061208
  Serious: No
  Sender: FDA-Public Use
  Company Number: S06-USA-01680-01

PATIENT
  Age: 80 Year
  Sex: Female

DRUGS (4)
  1. NAMENDA [Suspect]
  2. NAMENDA [Suspect]
  3. BLOOD PRESSURE MEDICATIONS (NOS) [Concomitant]
  4. MULTIPLE MEDICATIONS (NOS) [Concomitant]

REACTIONS (1)
  - BLOOD PRESSURE INCREASED [None]
